FAERS Safety Report 16188027 (Version 1)
Quarter: 2019Q2

REPORT INFORMATION
  Report Type: Report from Study
  Country: LB (occurrence: LB)
  Receive Date: 20190412
  Receipt Date: 20190412
  Transmission Date: 20190711
  Serious: Yes (Hospitalization)
  Sender: FDA-Public Use
  Company Number: LB-ROCHE-2297866

PATIENT
  Age: 42 Year
  Sex: Female

DRUGS (2)
  1. ACTEMRA [Suspect]
     Active Substance: TOCILIZUMAB
     Indication: RHEUMATOID ARTHRITIS
     Route: 058
     Dates: start: 20161007
  2. ACTEMRA [Suspect]
     Active Substance: TOCILIZUMAB
     Route: 058
     Dates: start: 20181126

REACTIONS (4)
  - Off label use [Unknown]
  - Mouth ulceration [Recovered/Resolved]
  - Pyrexia [Recovered/Resolved]
  - Cholecystectomy [Recovering/Resolving]

NARRATIVE: CASE EVENT DATE: 201903
